FAERS Safety Report 9227525 (Version 1)
Quarter: 2013Q2

REPORT INFORMATION
  Report Type: Spontaneous
  Country: ZA (occurrence: ZA)
  Receive Date: 20130412
  Receipt Date: 20130412
  Transmission Date: 20140414
  Serious: Yes (Death, Hospitalization)
  Sender: FDA-Public Use
  Company Number: PHHY2013ZA035277

PATIENT
  Age: 30 Year
  Sex: Male
  Weight: 130 kg

DRUGS (3)
  1. VOLTAREN [Suspect]
     Dosage: UNK UKN, UNK
  2. ZITHROMAX [Concomitant]
     Dosage: UNK UKN, UNK
  3. CELESTONE                               /NET/ [Concomitant]
     Dosage: 2 CC
     Route: 030

REACTIONS (2)
  - H1N1 influenza [Fatal]
  - Pneumonia [Unknown]
